FAERS Safety Report 9671726 (Version 1)
Quarter: 2013Q4

REPORT INFORMATION
  Report Type: Spontaneous
  Country: US (occurrence: US)
  Receive Date: 20131106
  Receipt Date: 20131106
  Transmission Date: 20140711
  Serious: Yes (Hospitalization)
  Sender: FDA-Public Use
  Company Number: US-ASTRAZENECA-2013SE80280

PATIENT
  Age: 29443 Day
  Sex: Female
  Weight: 26.8 kg

DRUGS (5)
  1. SYMBICORT [Suspect]
     Dosage: 160/ 4.5, 2 PUFFS BID
     Route: 055
     Dates: start: 20131024
  2. NEXIUM [Suspect]
     Indication: GASTROOESOPHAGEAL REFLUX DISEASE
     Route: 048
  3. COUMADIN [Concomitant]
     Route: 048
  4. NORVASC [Concomitant]
     Route: 048
  5. TRIAMPTERINE HYDROCHLORIATHIAZIDE [Concomitant]
     Indication: BLOOD PRESSURE ABNORMAL
     Dosage: 37 MG/ 10 MG DAILY
     Route: 048

REACTIONS (5)
  - Pulmonary thrombosis [Unknown]
  - Cough [Unknown]
  - Osteoarthritis [Unknown]
  - Abdominal pain upper [Unknown]
  - Device misuse [Unknown]
